FAERS Safety Report 5931086-0 (Version None)
Quarter: 2008Q4

REPORT INFORMATION
  Report Type: 
  Country: None (occurrence: None)
  Receive Date: 20081022
  Receipt Date: 20080703
  Transmission Date: 20090506
  Serious: Yes (Death, Hospitalization)
  Sender: FDA-Public Use
  Company Number: CL000272008

PATIENT
  Age: 76 Year
  Sex: Male

DRUGS (9)
  1. CIPROFLOXACIN [Suspect]
     Dosage: 500MG
  2. CARBOPLATIN [Suspect]
  3. CLARITHROMYCIN [Suspect]
  4. ETOPOSIDE [Suspect]
  5. BISOPROLOL FUMARATE [Concomitant]
  6. AMOXICILLIN + CLAVULANATE POTASSIUM [Concomitant]
  7. DEXAMETHASONE 0.5MG TAB [Concomitant]
  8. DOMPERIDONE [Concomitant]
  9. OMEPRAZOLE [Concomitant]

REACTIONS (2)
  - CLOSTRIDIUM DIFFICILE SEPSIS [None]
  - NEUTROPENIC SEPSIS [None]
